FAERS Safety Report 8138837-8 (Version None)
Quarter: 2012Q1

REPORT INFORMATION
  Report Type: 
  Country: None (occurrence: None)
  Receive Date: 20120215
  Receipt Date: 20120203
  Transmission Date: 20120608
  Serious: Yes (Hospitalization)
  Sender: FDA-Public Use
  Company Number: US-ROCHE-1039836

PATIENT
  Age: 87 Year
  Sex: Female
  Weight: 67 kg

DRUGS (3)
  1. CARBOPLATIN [Suspect]
     Indication: ENDOMETRIAL CANCER
     Dosage: DATE OF LAST DOSE PRIOR TO EVENT: 22/DEC/2011
     Route: 042
     Dates: start: 20111201
  2. AVASTIN [Suspect]
     Indication: ENDOMETRIAL CANCER
     Dosage: DATE OF LAST DOSE PRIOR TO EVENT: 22/DEC/2011
     Route: 042
     Dates: start: 20111201
  3. PACLITAXEL [Suspect]
     Indication: ENDOMETRIAL CANCER
     Dosage: DATE OF LAST DOSE PRIOR TO EVENT: 22/DEC/2011
     Route: 042

REACTIONS (1)
  - FAILURE TO THRIVE [None]
